FAERS Safety Report 15066736 (Version 1)
Quarter: 2018Q2

REPORT INFORMATION
  Report Type: Spontaneous
  Country: JP (occurrence: JP)
  Receive Date: 20180626
  Receipt Date: 20180626
  Transmission Date: 20180711
  Serious: Yes (Other)
  Sender: FDA-Public Use
  Company Number: JP-PFIZER INC-2018249431

PATIENT
  Sex: Female

DRUGS (3)
  1. INLYTA [Suspect]
     Active Substance: AXITINIB
     Dosage: 6 MG, UNK
  2. INLYTA [Suspect]
     Active Substance: AXITINIB
     Dosage: 10 MG, UNK
  3. INLYTA [Suspect]
     Active Substance: AXITINIB
     Dosage: 10 MG, UNK

REACTIONS (6)
  - Pneumonia [Unknown]
  - Decreased appetite [Unknown]
  - Diarrhoea [Unknown]
  - Neoplasm progression [Unknown]
  - Malaise [Unknown]
  - Atelectasis [Unknown]

NARRATIVE: CASE EVENT DATE: 201101
